FAERS Safety Report 10019898 (Version 1)
Quarter: 2014Q1

REPORT INFORMATION
  Report Type: Spontaneous
  Country: US (occurrence: US)
  Receive Date: 20140318
  Receipt Date: 20140318
  Transmission Date: 20141002
  Serious: No
  Sender: FDA-Public Use
  Company Number: US-GALDERMA-US14000323

PATIENT
  Age: 36 Year
  Sex: Female

DRUGS (3)
  1. MIRVASO (BRIMONIDINE) TOPICAL GEL, 0.33% [Suspect]
     Indication: ROSACEA
     Dosage: 0.33%
     Route: 061
     Dates: start: 20140116, end: 20140119
  2. METROGEL  (METRONIDAZOLE) GEL, 1% [Concomitant]
     Indication: ROSACEA
     Dosage: 1%
     Route: 061
     Dates: start: 2008
  3. DOXYCYCLINE [Concomitant]
     Indication: ROSACEA
     Route: 048
     Dates: start: 2008

REACTIONS (3)
  - Feeling hot [Not Recovered/Not Resolved]
  - Flushing [Not Recovered/Not Resolved]
  - Erythema [Not Recovered/Not Resolved]
